FAERS Safety Report 23220315 (Version 1)
Quarter: 2023Q4

REPORT INFORMATION
  Report Type: Spontaneous
  Country: US (occurrence: US)
  Receive Date: 20231123
  Receipt Date: 20231123
  Transmission Date: 20240110
  Serious: No
  Sender: FDA-Public Use
  Company Number: US-APOTEX-2023AP009385

PATIENT
  Sex: Female

DRUGS (2)
  1. KETOROLAC TROMETHAMINE [Suspect]
     Active Substance: KETOROLAC TROMETHAMINE
     Indication: Product used for unknown indication
     Dosage: 2 GTT DROPS, QID (1DROP IN EACH EYE 4 TIMES A DAY)
     Route: 047
  2. KETOROLAC TROMETHAMINE [Suspect]
     Active Substance: KETOROLAC TROMETHAMINE
     Dosage: 2 GTT DROPS, QID (1DROP IN EACH EYE 4 TIMES A DAY)
     Route: 047

REACTIONS (3)
  - Product delivery mechanism issue [Unknown]
  - Extra dose administered [Unknown]
  - No adverse event [Unknown]
